FAERS Safety Report 22057655 (Version 1)
Quarter: 2023Q1

REPORT INFORMATION
  Report Type: Spontaneous
  Country: US (occurrence: None)
  Receive Date: 20230303
  Receipt Date: 20230303
  Transmission Date: 20230417
  Serious: No
  Sender: FDA-Public Use
  Company Number: US-VistaPharm, Inc.-VER202208-000679

PATIENT
  Age: 83 Year
  Sex: Female
  Weight: 63.503 kg

DRUGS (2)
  1. ACETAMINOPHEN\HYDROCODONE [Suspect]
     Active Substance: ACETAMINOPHEN\HYDROCODONE
     Indication: Pain
     Dosage: 10 ML (7.5 MG HYDROCODONE BITARTRATE/325 MG ACETAMINOPHEN PER 15 ML)
     Route: 048
     Dates: start: 20220628
  2. ROPINIROLE [Concomitant]
     Active Substance: ROPINIROLE
     Indication: Restless legs syndrome
     Dosage: UNKNOWN
     Route: 065

REACTIONS (1)
  - Burning sensation [Recovered/Resolved]

NARRATIVE: CASE EVENT DATE: 20220705
